FAERS Safety Report 13823751 (Version 1)
Quarter: 2017Q3

REPORT INFORMATION
  Report Type: Report from Study
  Country: CA (occurrence: CA)
  Receive Date: 20170802
  Receipt Date: 20170802
  Transmission Date: 20171127
  Serious: Yes (Other)
  Sender: FDA-Public Use
  Company Number: CA-ROCHE-1966057

PATIENT
  Sex: Female

DRUGS (18)
  1. VITAMIN E [Concomitant]
     Active Substance: .ALPHA.-TOCOPHEROL
  2. ACTEMRA [Suspect]
     Active Substance: TOCILIZUMAB
     Indication: RHEUMATOID ARTHRITIS
     Route: 042
     Dates: start: 20110218
  3. ACTEMRA [Suspect]
     Active Substance: TOCILIZUMAB
     Route: 042
     Dates: start: 20150313
  4. BETA CAROTENE [Concomitant]
  5. OREGANO. [Concomitant]
     Active Substance: OREGANO
     Route: 065
  6. TYLENOL [Concomitant]
     Active Substance: ACETAMINOPHEN
  7. VITAMIN B12 [Concomitant]
     Active Substance: CYANOCOBALAMIN
  8. VITAMIN C [Concomitant]
     Active Substance: ASCORBIC ACID
  9. SALMON OIL [Concomitant]
     Active Substance: FISH OIL
     Dosage: WILD SALMON OIL COMPLEX
     Route: 065
  10. INOSITOL [Concomitant]
     Active Substance: INOSITOL
  11. ACTEMRA [Suspect]
     Active Substance: TOCILIZUMAB
     Route: 042
     Dates: start: 20131119
  12. L-TYROSINE [Concomitant]
  13. SELENIUM [Concomitant]
     Active Substance: SELENIUM
  14. MACROBID [Concomitant]
     Active Substance: NITROFURANTOIN\NITROFURANTOIN MONOHYDRATE
  15. TECTA [Concomitant]
     Active Substance: PANTOPRAZOLE MAGNESIUM
  16. PRIMROSE [Concomitant]
     Route: 065
  17. VALTREX [Concomitant]
     Active Substance: VALACYCLOVIR HYDROCHLORIDE
  18. PREDNISONE. [Concomitant]
     Active Substance: PREDNISONE

REACTIONS (1)
  - Tooth disorder [Unknown]
